FAERS Safety Report 11127527 (Version 1)
Quarter: 2015Q2

REPORT INFORMATION
  Report Type: Spontaneous
  Country: US (occurrence: None)
  Receive Date: 20150520
  Receipt Date: 20150520
  Transmission Date: 20150821
  Serious: Yes (Hospitalization)
  Sender: FDA-Public Use
  Company Number: None

PATIENT
  Age: 39 Year
  Sex: Male
  Weight: 82.3 kg

DRUGS (2)
  1. CISPLATIN. [Suspect]
     Active Substance: CISPLATIN
     Dates: start: 20141113
  2. DOCETAXEL. [Suspect]
     Active Substance: DOCETAXEL
     Dates: start: 20141113

REACTIONS (6)
  - Hyponatraemia [None]
  - Dermatitis [None]
  - Nausea [None]
  - Vomiting [None]
  - Dehydration [None]
  - Diarrhoea [None]

NARRATIVE: CASE EVENT DATE: 20141113
